FAERS Safety Report 5903495-7 (Version None)
Quarter: 2008Q3

REPORT INFORMATION
  Report Type: 
  Country: None (occurrence: None)
  Receive Date: 20080930
  Receipt Date: 20080919
  Transmission Date: 20090109
  Serious: Yes (Hospitalization)
  Sender: FDA-Public Use
  Company Number: US-JNJFOC-20080904776

PATIENT
  Sex: Female
  Weight: 54.43 kg

DRUGS (1)
  1. DURAGESIC-100 [Suspect]
     Indication: ARTHRALGIA
     Dosage: 2 X 100 UG/HR PATCHES
     Route: 062

REACTIONS (4)
  - ACCIDENT [None]
  - CYSTITIS [None]
  - DEPRESSION [None]
  - INCORRECT DRUG ADMINISTRATION DURATION [None]
